FAERS Safety Report 5062793-2 (Version None)
Quarter: 2006Q3

REPORT INFORMATION
  Report Type: 
  Country: None (occurrence: None)
  Receive Date: 20060724
  Receipt Date: 20060724
  Transmission Date: 20061208
  Serious: Yes (Life-Threatening)
  Sender: FDA-Public Use
  Company Number: None

PATIENT
  Age: 48 Year
  Sex: Female
  Weight: 83.9154 kg

DRUGS (2)
  1. HYDROGEN PEROXIDE SOLUTION [Suspect]
     Indication: HEPATITIS C
     Dosage: 1X IV DRIP
     Route: 042
     Dates: start: 20040601, end: 20040601
  2. SEE IMAGE PER FDA REP [Concomitant]

REACTIONS (1)
  - CONTRAINDICATION TO MEDICAL TREATMENT [None]
